FAERS Safety Report 7501868-2 (Version None)
Quarter: 2011Q2

REPORT INFORMATION
  Report Type: 
  Country: None (occurrence: None)
  Receive Date: 20110525
  Receipt Date: 20110511
  Transmission Date: 20111010
  Serious: Yes (Other)
  Sender: FDA-Public Use
  Company Number: US-BAYER-201028810NA

PATIENT
  Sex: Female
  Weight: 90.703 kg

DRUGS (10)
  1. YASMIN [Suspect]
     Indication: PRODUCT USED FOR UNKNOWN INDICATION
     Dosage: UNK
     Dates: start: 20070101, end: 20100101
  2. NAPROXEN [Concomitant]
     Route: 048
  3. IBUPROFEN [Concomitant]
     Route: 048
  4. MOTRIN [Concomitant]
     Route: 048
  5. ZITHROMAX [Concomitant]
     Indication: PHARYNGITIS
     Dosage: 250 MG, UNK
     Dates: start: 20090727
  6. MEDROL [Concomitant]
     Dosage: 4 MG, UNK
     Route: 048
     Dates: start: 20090727
  7. YAZ [Suspect]
     Dosage: UNK
     Route: 048
     Dates: start: 20070101, end: 20100101
  8. ALPRAZOLAM [Concomitant]
  9. PROTONIX [Concomitant]
     Dosage: 40 MG, UNK
     Route: 048
     Dates: start: 20090911
  10. DIFLUCAN [Concomitant]
     Dosage: 150 MG, UNK
     Dates: start: 20090727

REACTIONS (4)
  - GALLBLADDER DISORDER [None]
  - CHOLECYSTITIS CHRONIC [None]
  - CHOLECYSTITIS ACUTE [None]
  - CHOLELITHIASIS [None]
